FAERS Safety Report 6304024-9 (Version None)
Quarter: 2009Q3

REPORT INFORMATION
  Report Type: 
  Country: None (occurrence: None)
  Receive Date: 20090810
  Receipt Date: 20090810
  Transmission Date: 20100115
  Serious: Yes (Other)
  Sender: FDA-Public Use
  Company Number: None

PATIENT
  Age: 58 Year
  Sex: Female
  Weight: 63.5036 kg

DRUGS (2)
  1. SIMPONI [Suspect]
     Indication: ANKYLOSING SPONDYLITIS
     Dosage: 50MG/.5ML SMART INJECT ONCE A MONTH SQ
     Dates: start: 20090619, end: 20090801
  2. SIMPONI [Suspect]
     Indication: UVEITIS
     Dosage: 50MG/.5ML SMART INJECT ONCE A MONTH SQ
     Dates: start: 20090619, end: 20090801

REACTIONS (9)
  - ASTHENIA [None]
  - CHILLS [None]
  - DIARRHOEA [None]
  - DRUG EFFECT DECREASED [None]
  - DYSSTASIA [None]
  - FEAR [None]
  - FEELING ABNORMAL [None]
  - GINGIVAL INFECTION [None]
  - TREMOR [None]
